FAERS Safety Report 20784521 (Version 1)
Quarter: 2022Q2

REPORT INFORMATION
  Report Type: Spontaneous
  Country: CA (occurrence: CA)
  Receive Date: 20220504
  Receipt Date: 20220504
  Transmission Date: 20220721
  Serious: Yes (Hospitalization, Other)
  Sender: FDA-Public Use
  Company Number: CA-PFIZER INC-202200624099

PATIENT
  Age: 9 Year
  Sex: Male
  Weight: 33 kg

DRUGS (8)
  1. METHOTREXATE SODIUM [Suspect]
     Active Substance: METHOTREXATE SODIUM
     Indication: Burkitt^s lymphoma stage III
     Dosage: 3510 MG
     Route: 037
  2. CYTARABINE [Suspect]
     Active Substance: CYTARABINE
     Indication: Burkitt^s lymphoma stage III
     Dosage: 117 MG
  3. LEUCOVORIN [Suspect]
     Active Substance: LEUCOVORIN
     Indication: Burkitt^s lymphoma stage III
     Dosage: 18 MG
  4. RITUXIMAB [Suspect]
     Active Substance: RITUXIMAB
     Indication: Burkitt^s lymphoma stage III
     Dosage: 440 MG
  5. GRAVOL [Concomitant]
     Active Substance: DIMENHYDRINATE
     Dosage: UNK
  6. MORPHINE [Concomitant]
     Active Substance: MORPHINE
     Dosage: UNK
  7. TYLENOL [Concomitant]
     Active Substance: ACETAMINOPHEN
     Dosage: UNK
  8. ZOFRAN [Concomitant]
     Active Substance: ONDANSETRON HYDROCHLORIDE
     Dosage: UNK

REACTIONS (3)
  - Aplastic anaemia [Not Recovered/Not Resolved]
  - Off label use [Unknown]
  - Off label use [Unknown]
